FAERS Safety Report 17527074 (Version 1)
Quarter: 2020Q1

REPORT INFORMATION
  Report Type: Spontaneous
  Country: FR (occurrence: FR)
  Receive Date: 20200310
  Receipt Date: 20200310
  Transmission Date: 20200409
  Serious: Yes (Other)
  Sender: FDA-Public Use
  Company Number: FR-SA-2020SA061206

PATIENT
  Age: 86 Year
  Sex: Male

DRUGS (1)
  1. MYTELASE [Suspect]
     Active Substance: AMBENONIUM CHLORIDE
     Indication: MYASTHENIA GRAVIS
     Dosage: 3 DF, QD (AFTER MEAL)
     Route: 065

REACTIONS (5)
  - Paralysis [Unknown]
  - Fall [Unknown]
  - Product use issue [Unknown]
  - Off label use [Unknown]
  - Malaise [Recovered/Resolved]
